FAERS Safety Report 16709938 (Version 1)
Quarter: 2019Q4

REPORT INFORMATION
  Report Type: Spontaneous
  Country: US (occurrence: US)
  Receive Date: 20190815
  Receipt Date: 20190815
  Transmission Date: 20200122
  Serious: Yes (Disabling)
  Sender: FDA-Public Use
  Company Number: None

PATIENT
  Age: 69 Year
  Sex: Female
  Weight: 73.8 kg

DRUGS (6)
  1. CALCIUM [Concomitant]
     Active Substance: CALCIUM
  2. AIMOVIG [Suspect]
     Active Substance: ERENUMAB-AOOE
     Indication: MIGRAINE PROPHYLAXIS
     Dosage: ?          QUANTITY:1 INJECTION(S);OTHER FREQUENCY:MONTHLY;OTHER ROUTE:SUB DURAL INJECTION?
     Dates: start: 20190524, end: 20190806
  3. MULTIVITAMIN [Concomitant]
     Active Substance: VITAMINS
  4. MAXALT [Concomitant]
     Active Substance: RIZATRIPTAN BENZOATE
  5. FIOCET [Concomitant]
  6. WELCHOL [Concomitant]
     Active Substance: COLESEVELAM HYDROCHLORIDE

REACTIONS (4)
  - Arthralgia [None]
  - Hot flush [None]
  - Pruritus [None]
  - Weight increased [None]

NARRATIVE: CASE EVENT DATE: 20190524
